FAERS Safety Report 13071896 (Version 1)
Quarter: 2016Q4

REPORT INFORMATION
  Report Type: Spontaneous
  Country: JP (occurrence: JP)
  Receive Date: 20161229
  Receipt Date: 20161229
  Transmission Date: 20170207
  Serious: Yes (Other)
  Sender: FDA-Public Use
  Company Number: JP-PFIZER INC-2016598771

PATIENT
  Age: 84 Year
  Sex: Female

DRUGS (1)
  1. JZOLOFT 25MG [Suspect]
     Active Substance: SERTRALINE HYDROCHLORIDE
     Dosage: TWICE DAILY
     Route: 048

REACTIONS (2)
  - Abnormal behaviour [Unknown]
  - Confusional state [Unknown]
